FAERS Safety Report 12607601 (Version 1)
Quarter: 2016Q3

REPORT INFORMATION
  Report Type: Spontaneous
  Country: DE (occurrence: DE)
  Receive Date: 20160729
  Receipt Date: 20160729
  Transmission Date: 20161109
  Serious: Yes (Congenital Anomaly, Other)
  Sender: FDA-Public Use
  Company Number: DE-TEVA-678971GER

PATIENT
  Age: 1 Day
  Sex: Female
  Weight: 1.23 kg

DRUGS (8)
  1. OMEPRAZOL [Concomitant]
     Active Substance: OMEPRAZOLE
     Indication: PROPHYLAXIS AGAINST GASTROINTESTINAL ULCER
     Dosage: 20 MG/D, FOR PROPHYLAXIS OR FOR GASTRITIS. CONTRADICTORY STATEMENTS IF PANTOPRAZOL OR OMEPRAZOL.
     Route: 064
  2. PANTOPRAZOL [Concomitant]
     Active Substance: PANTOPRAZOLE SODIUM
     Indication: GASTRITIS
     Dosage: FOR PROPHYLAXIS OR FOR GASTRITIS. CONTRADICTORY STATEMENTS IF PANTOPRAZOL OR OMEPRAZOL.
     Route: 064
  3. MIRTAZAPIN [Concomitant]
     Active Substance: MIRTAZAPINE
     Indication: NAUSEA
     Dosage: IF REQUIRED. IN TOTAL ONLY FOR 3 DAYS.
     Route: 064
  4. TAVOR 1,0 EXPIDET [Concomitant]
     Indication: PRODUCT USED FOR UNKNOWN INDICATION
     Dosage: 1 MG/D / ONCE
     Route: 064
  5. GLUCOSE 5% INFUSION [Concomitant]
     Indication: NAUSEA
     Route: 064
     Dates: start: 20150529, end: 20150529
  6. MCP [Concomitant]
     Active Substance: METOCLOPRAMIDE HYDROCHLORIDE
     Indication: NAUSEA
     Route: 064
     Dates: start: 20150529, end: 20150529
  7. GYNVITAL GRAVIDA [Concomitant]
     Active Substance: HERBALS
     Indication: PROPHYLAXIS OF NEURAL TUBE DEFECT
     Dosage: .4 MILLIGRAM DAILY;
     Route: 064
  8. SERTRALINE [Suspect]
     Active Substance: SERTRALINE HYDROCHLORIDE
     Indication: ANXIETY DISORDER
     Dosage: 75 MILLIGRAM DAILY;
     Route: 064
     Dates: start: 20150223, end: 20150929

REACTIONS (6)
  - Premature baby [Recovered/Resolved]
  - Foetal exposure during pregnancy [Unknown]
  - Granulocytopenia neonatal [Not Recovered/Not Resolved]
  - Neonatal respiratory distress syndrome [Recovered/Resolved]
  - Tethered cord syndrome [Not Recovered/Not Resolved]
  - Congenital skin dimples [Not Recovered/Not Resolved]

NARRATIVE: CASE EVENT DATE: 20150929
